FAERS Safety Report 9581421 (Version 2)
Quarter: 2013Q4

REPORT INFORMATION
  Report Type: Report from Study
  Country: CA (occurrence: CA)
  Receive Date: 20131002
  Receipt Date: 20131009
  Transmission Date: 20140711
  Serious: Yes (Death)
  Sender: FDA-Public Use
  Company Number: PHHY2013CA109702

PATIENT
  Age: 49 Year
  Sex: Male

DRUGS (6)
  1. CLOZARIL [Suspect]
     Indication: SCHIZOPHRENIA
     Dosage: 100 MG DAILY
     Route: 048
     Dates: start: 19980525
  2. XANAX [Concomitant]
     Dosage: 1 MG, QID
  3. INVEGA//PALIPERIDONE [Concomitant]
     Dosage: 6 MG, TID
  4. LUVOX [Concomitant]
     Dosage: 50 MG, AT BED TIME
  5. TEMAZEPAM [Concomitant]
     Dosage: 30 MG, AT BED TIME
  6. SEROQUEL [Concomitant]
     Dosage: 400 MG, AT BED TIME

REACTIONS (1)
  - Death [Fatal]
